FAERS Safety Report 5992349-6 (Version None)
Quarter: 2008Q4

REPORT INFORMATION
  Report Type: 
  Country: None (occurrence: None)
  Receive Date: 20081202
  Receipt Date: 20080411
  Transmission Date: 20090506
  Serious: Yes (Hospitalization)
  Sender: FDA-Public Use
  Company Number: WAES 0705USA02811

PATIENT
  Age: 42 Year
  Sex: Female
  Weight: 73.4827 kg

DRUGS (2)
  1. FOSAMAX [Suspect]
     Indication: OSTEOPOROSIS
     Dosage: 70 MG/PO
     Route: 048
     Dates: start: 20030101, end: 20080805
  2. LOTREL [Concomitant]

REACTIONS (11)
  - BACK INJURY [None]
  - BRONCHITIS [None]
  - CONTUSION [None]
  - DENTAL CARIES [None]
  - DYSPNOEA [None]
  - ORAL PAIN [None]
  - ROAD TRAFFIC ACCIDENT [None]
  - SWELLING [None]
  - TOOTH LOSS [None]
  - UPPER LIMB FRACTURE [None]
  - VERTIGO [None]
